FAERS Safety Report 7656349-2 (Version None)
Quarter: 2011Q3

REPORT INFORMATION
  Report Type: 
  Country: None (occurrence: None)
  Receive Date: 20110804
  Receipt Date: 20110714
  Transmission Date: 20111222
  Serious: Yes (Hospitalization)
  Sender: FDA-Public Use
  Company Number: US-GLAXOSMITHKLINE-A0868989A

PATIENT
  Age: 45 Year
  Sex: Male

DRUGS (1)
  1. AVANDIA [Suspect]
     Indication: DIABETES MELLITUS
     Dosage: 8MG PER DAY
     Route: 048
     Dates: start: 20031201, end: 20050401

REACTIONS (4)
  - CARDIAC FAILURE CONGESTIVE [None]
  - ARTERIAL OCCLUSIVE DISEASE [None]
  - IMPLANTABLE DEFIBRILLATOR INSERTION [None]
  - ACUTE MYOCARDIAL INFARCTION [None]
